FAERS Safety Report 10511217 (Version 1)
Quarter: 2014Q4

REPORT INFORMATION
  Report Type: Spontaneous
  Country: US (occurrence: US)
  Receive Date: 20141010
  Receipt Date: 20141010
  Transmission Date: 20150528
  Serious: Yes (Other)
  Sender: FDA-Public Use
  Company Number: US-DYAX CORP.-2014DX000237

PATIENT
  Age: 58 Year
  Sex: Female
  Weight: 70.37 kg

DRUGS (8)
  1. DANAZOL. [Concomitant]
     Active Substance: DANAZOL
     Indication: ANGIOEDEMA
     Route: 048
  2. CEPHALEXIN. [Concomitant]
     Active Substance: CEPHALEXIN
     Indication: STAPHYLOCOCCAL INFECTION
     Route: 048
  3. NAUSEA MEDICATION [Concomitant]
     Active Substance: UNSPECIFIED INGREDIENT
     Indication: NAUSEA
     Route: 048
  4. KALBITOR [Suspect]
     Active Substance: ECALLANTIDE
     Indication: ANGIOEDEMA
     Route: 058
  5. KALBITOR [Suspect]
     Active Substance: ECALLANTIDE
     Route: 058
  6. CYTOXAN [Concomitant]
     Active Substance: CYCLOPHOSPHAMIDE
     Indication: LYMPHOMA
     Route: 065
  7. RITUXAN [Concomitant]
     Active Substance: RITUXIMAB
     Indication: LYMPHOMA
     Route: 065
  8. PREMARIN [Concomitant]
     Active Substance: ESTROGENS, CONJUGATED
     Indication: HORMONE THERAPY
     Route: 048

REACTIONS (4)
  - Cerebrovascular accident [Recovered/Resolved]
  - Dizziness [Not Recovered/Not Resolved]
  - Therapeutic response decreased [Unknown]
  - Off label use [Unknown]

NARRATIVE: CASE EVENT DATE: 201409
